FAERS Safety Report 19120637 (Version 2)
Quarter: 2021Q2

REPORT INFORMATION
  Report Type: Spontaneous
  Country: JP (occurrence: JP)
  Receive Date: 20210412
  Receipt Date: 20210525
  Transmission Date: 20210717
  Serious: Yes (Hospitalization, Other)
  Sender: FDA-Public Use
  Company Number: NVSJ2021JP005504

PATIENT
  Age: 92 Year
  Sex: Male

DRUGS (1)
  1. ENERZAIR [Suspect]
     Active Substance: GLYCOPYRROLATE\INDACATEROL\MOMETASONE FUROATE
     Indication: ASTHMA
     Dosage: 1DF:INDACATEROL ACETATE150UG,GLYCOPYRRONIUM BROMIDE50UG,MOMETASONE FUROATE 160UG,UNK
     Route: 055

REACTIONS (1)
  - Pneumonia [Unknown]
